FAERS Safety Report 20662855 (Version 1)
Quarter: 2022Q1

REPORT INFORMATION
  Report Type: Spontaneous
  Country: US (occurrence: None)
  Receive Date: 20220331
  Receipt Date: 20220331
  Transmission Date: 20220423
  Serious: Yes (Other)
  Sender: FDA-Public Use
  Company Number: None

PATIENT
  Age: 64 Year
  Sex: Female
  Weight: 98 kg

DRUGS (1)
  1. DIPRIVAN [Suspect]
     Active Substance: PROPOFOL
     Dosage: OTHER FREQUENCY : ONCE;?
     Route: 040
     Dates: start: 20220322, end: 20220322

REACTIONS (4)
  - Dermatitis allergic [None]
  - Blister [None]
  - Pruritus [None]
  - Postoperative delirium [None]

NARRATIVE: CASE EVENT DATE: 20220322
